FAERS Safety Report 4404144-X (Version None)
Quarter: 2004Q3

REPORT INFORMATION
  Report Type: 
  Country: None (occurrence: None)
  Receive Date: 20040719
  Receipt Date: 20040706
  Transmission Date: 20050211
  Serious: Yes (Hospitalization)
  Sender: FDA-Public Use
  Company Number: 2004-0006928

PATIENT
  Age: 53 Year
  Sex: Male
  Weight: 73 kg

DRUGS (9)
  1. VIREAD (TENOFOVIR DISOPROXIL FUMARATE) (300 MILLIGRAM, TABLET) [Suspect]
     Indication: HIV INFECTION
     Dosage: 300 MG, 1 IN 1 D, ORAL
     Route: 048
     Dates: start: 20030402, end: 20040316
  2. ENFUVIRTIDE (ENFUVIRTIDE) (90 MILLIGRAM, INJECTION) [Suspect]
     Indication: HIV INFECTION
     Dosage: 90 MG, 1 IN 2 D, SUBCUTANEOUS
     Route: 058
     Dates: start: 20030402, end: 20040316
  3. MCP DROPS (METOCLOPRAMDE) (200, ORAL LIQUID) [Concomitant]
  4. ALLOPURINOL [Concomitant]
  5. KALETRA (KALETRA) (TABLET) [Concomitant]
  6. RITONAVIR (RITONAVIR) (100 MILLIGRAM, TABLET) [Concomitant]
  7. EPIVIR (LAMIVUDINE) (150 MILLIGRAM, TABLET) [Concomitant]
  8. CAPTOPRIL (CAPTOPRIL) (6.25 MILLIGRAM, TABLET) [Concomitant]
  9. VOLTAREN (75 MILLIGRAM, TABLET) [Concomitant]

REACTIONS (20)
  - GOUT [None]
  - HAEMODIALYSIS [None]
  - HAEMORRHAGE [None]
  - HEADACHE [None]
  - HEPATIC STEATOSIS [None]
  - HEPATOCELLULAR DAMAGE [None]
  - INFLUENZA [None]
  - LIVER PALPABLE SUBCOSTAL [None]
  - LYMPHADENOPATHY [None]
  - NEPHRITIS INTERSTITIAL [None]
  - NEPHROGENIC ANAEMIA [None]
  - PAIN IN EXTREMITY [None]
  - PYELONEPHRITIS [None]
  - RENAL FAILURE ACUTE [None]
  - RENAL HAEMATOMA [None]
  - RENAL PAIN [None]
  - RENAL TUBULAR DISORDER [None]
  - SPLENOMEGALY [None]
  - URINARY TRACT INFECTION [None]
  - WEIGHT DECREASED [None]
